FAERS Safety Report 9549129 (Version 3)
Quarter: 2013Q4

REPORT INFORMATION
  Report Type: Spontaneous
  Country: IT (occurrence: IT)
  Receive Date: 20130924
  Receipt Date: 20131121
  Transmission Date: 20140711
  Serious: Yes (Hospitalization)
  Sender: FDA-Public Use
  Company Number: IT-PFIZER INC-2013273503

PATIENT
  Age: 49 Year
  Sex: Male

DRUGS (3)
  1. LYRICA [Suspect]
     Indication: DRUG ABUSE
     Dosage: 3150 MG, TOTAL
     Route: 048
     Dates: start: 20130912, end: 20130912
  2. TRITTICO [Suspect]
     Indication: DRUG ABUSE
     Dosage: 6000 MG, TOTAL
     Route: 048
     Dates: start: 20130912, end: 20130912
  3. ZOLOFT [Concomitant]
     Dosage: 150 MG, DAILY

REACTIONS (3)
  - Intentional overdose [Recovered/Resolved]
  - Drug abuse [Recovered/Resolved]
  - Sopor [Recovered/Resolved]
